FAERS Safety Report 21860208 (Version 4)
Quarter: 2023Q2

REPORT INFORMATION
  Report Type: Report from Study
  Country: US (occurrence: US)
  Receive Date: 20230113
  Receipt Date: 20230605
  Transmission Date: 20230722
  Serious: Yes (Other)
  Sender: FDA-Public Use
  Company Number: US-UCBSA-2023001167

PATIENT
  Sex: Female
  Weight: 159 kg

DRUGS (2)
  1. CERTOLIZUMAB PEGOL [Suspect]
     Active Substance: CERTOLIZUMAB PEGOL
     Indication: Psoriasis
     Dosage: 400 MILLIGRAM, EV 2 WEEKS(QOW)
     Route: 058
     Dates: start: 20220712, end: 202211
  2. CERTOLIZUMAB PEGOL [Suspect]
     Active Substance: CERTOLIZUMAB PEGOL
     Dosage: 400 MILLIGRAM, EV 4 WEEKS
     Route: 058
     Dates: start: 2022, end: 2022

REACTIONS (12)
  - Bronchitis [Recovered/Resolved]
  - Respiratory syncytial virus infection [Recovered/Resolved]
  - Illness [Not Recovered/Not Resolved]
  - Decreased immune responsiveness [Not Recovered/Not Resolved]
  - Influenza [Not Recovered/Not Resolved]
  - Bacterial vaginosis [Not Recovered/Not Resolved]
  - Gastroenteritis viral [Unknown]
  - Psoriasis [Not Recovered/Not Resolved]
  - SARS-CoV-2 test positive [Unknown]
  - Maternal exposure before pregnancy [Unknown]
  - Maternal exposure during pregnancy [Unknown]
  - Intentional dose omission [Unknown]

NARRATIVE: CASE EVENT DATE: 20220101
